FAERS Safety Report 9301548 (Version 1)
Quarter: 2013Q2

REPORT INFORMATION
  Report Type: Spontaneous
  Country: GB (occurrence: GB)
  Receive Date: 20130521
  Receipt Date: 20130521
  Transmission Date: 20140414
  Serious: Yes (Hospitalization)
  Sender: FDA-Public Use
  Company Number: GB-TEVA-406328ISR

PATIENT
  Age: 26 Year
  Sex: Female

DRUGS (3)
  1. FENTANYL [Suspect]
  2. TRAMADOL [Suspect]
     Dosage: 400 MILLIGRAM DAILY;
  3. ORAMORPH [Suspect]
     Dosage: 100 MILLIGRAM DAILY;

REACTIONS (1)
  - Narcotic bowel syndrome [Recovered/Resolved]
